FAERS Safety Report 19700500 (Version 1)
Quarter: 2021Q3

REPORT INFORMATION
  Report Type: Report from Study
  Country: US (occurrence: US)
  Receive Date: 20210813
  Receipt Date: 20210813
  Transmission Date: 20211014
  Serious: Yes (Death)
  Sender: FDA-Public Use
  Company Number: US-ASTRAZENECA-2021A676322

PATIENT
  Age: 22209 Day
  Sex: Male
  Weight: 103.9 kg

DRUGS (7)
  1. NIFEDIPINE. [Concomitant]
     Active Substance: NIFEDIPINE
  2. TAMSULOSIN [Concomitant]
     Active Substance: TAMSULOSIN
  3. CALQUENCE [Suspect]
     Active Substance: ACALABRUTINIB
     Indication: CHRONIC LYMPHOCYTIC LEUKAEMIA
     Route: 048
  4. COLCHICINE. [Concomitant]
     Active Substance: COLCHICINE
  5. LOSARTAN. [Concomitant]
     Active Substance: LOSARTAN
  6. MULTIVITAMIN [Concomitant]
     Active Substance: VITAMINS
  7. ALLOPURINOL. [Concomitant]
     Active Substance: ALLOPURINOL

REACTIONS (1)
  - Death [Fatal]

NARRATIVE: CASE EVENT DATE: 20210801
